FAERS Safety Report 20675568 (Version 2)
Quarter: 2022Q2

REPORT INFORMATION
  Report Type: Spontaneous
  Country: AU (occurrence: AU)
  Receive Date: 20220405
  Receipt Date: 20220419
  Transmission Date: 20220721
  Serious: Yes (Other)
  Sender: FDA-Public Use
  Company Number: AU-GE HEALTHCARE-2022CSU002126

PATIENT
  Age: 55 Year
  Sex: Male
  Weight: 96 kg

DRUGS (5)
  1. OMNIPAQUE [Suspect]
     Active Substance: IOHEXOL
     Indication: Computerised tomogram thorax
     Dosage: 100 ML, SINGLE
     Route: 042
     Dates: start: 20220328, end: 20220328
  2. OMNIPAQUE [Suspect]
     Active Substance: IOHEXOL
     Indication: Computerised tomogram abdomen
  3. OMNIPAQUE [Suspect]
     Active Substance: IOHEXOL
     Indication: Lethargy
  4. OMNIPAQUE [Suspect]
     Active Substance: IOHEXOL
     Indication: Productive cough
  5. OMNIPAQUE [Suspect]
     Active Substance: IOHEXOL
     Indication: Leukaemia

REACTIONS (8)
  - Pallor [Unknown]
  - Malaise [Unknown]
  - Cold sweat [Unknown]
  - Loss of consciousness [Unknown]
  - Feeling hot [Unknown]
  - Dizziness [Unknown]
  - Headache [Unknown]
  - Contrast media reaction [Unknown]

NARRATIVE: CASE EVENT DATE: 20220328
